FAERS Safety Report 5256191-6 (Version None)
Quarter: 2007Q1

REPORT INFORMATION
  Report Type: 
  Country: None (occurrence: None)
  Receive Date: 20070306
  Receipt Date: 20070228
  Transmission Date: 20070707
  Serious: Yes (Death, Hospitalization)
  Sender: FDA-Public Use
  Company Number: FR-AVENTIS-200710736FR

PATIENT
  Age: 67 Year
  Sex: Male

DRUGS (7)
  1. TAXOTERE [Suspect]
     Indication: PROSTATE CANCER
     Route: 042
     Dates: start: 20040515, end: 20050415
  2. ZOMETA [Suspect]
     Indication: PROSTATE CANCER
     Route: 042
     Dates: start: 20030522, end: 20050915
  3. ZOLADEX [Concomitant]
     Indication: PROSTATE CANCER
     Dates: start: 20030301, end: 20030101
  4. ZOLADEX [Concomitant]
     Dates: start: 20050401
  5. NOVANTRONE [Concomitant]
     Indication: PROSTATE CANCER
     Dates: start: 20030301, end: 20030101
  6. ANDROCUR [Concomitant]
     Indication: PROSTATE CANCER
     Dates: start: 20030301, end: 20030101
  7. ESTRACYT                           /00327002/ [Concomitant]
     Dates: start: 20050401

REACTIONS (3)
  - DEATH [None]
  - OSTEONECROSIS [None]
  - STOMATITIS NECROTISING [None]
